FAERS Safety Report 12460520 (Version 1)
Quarter: 2016Q2

REPORT INFORMATION
  Report Type: Report from Study
  Country: CA (occurrence: CA)
  Receive Date: 20160613
  Receipt Date: 20160613
  Transmission Date: 20160815
  Serious: Yes (Other)
  Sender: FDA-Public Use
  Company Number: CA-JNJFOC-20160605226

PATIENT
  Age: 12 Year
  Sex: Female
  Weight: 61 kg

DRUGS (4)
  1. REMICADE [Suspect]
     Active Substance: INFLIXIMAB
     Indication: CROHN^S DISEASE
     Route: 042
     Dates: start: 20160606
  2. METHOTREXATE [Concomitant]
     Active Substance: METHOTREXATE
     Route: 058
  3. REMICADE [Suspect]
     Active Substance: INFLIXIMAB
     Indication: CROHN^S DISEASE
     Route: 042
     Dates: start: 20141216
  4. REMICADE [Suspect]
     Active Substance: INFLIXIMAB
     Indication: CROHN^S DISEASE
     Route: 042
     Dates: start: 20150310

REACTIONS (4)
  - Tonsillar disorder [Recovering/Resolving]
  - Abdominal pain [Recovering/Resolving]
  - Adenoidectomy [Recovering/Resolving]
  - Ear tube insertion [Recovering/Resolving]

NARRATIVE: CASE EVENT DATE: 20160503
